FAERS Safety Report 25445204 (Version 2)
Quarter: 2025Q3

REPORT INFORMATION
  Report Type: Spontaneous
  Country: EU (occurrence: EU)
  Receive Date: 20250617
  Receipt Date: 20250804
  Transmission Date: 20251021
  Serious: Yes (Other)
  Sender: AMGEN
  Company Number: EU-AMGEN-ROUSP2025117348

PATIENT
  Age: 76 Year
  Sex: Male

DRUGS (1)
  1. REPATHA [Suspect]
     Active Substance: EVOLOCUMAB
     Indication: Dyslipidaemia
     Route: 065

REACTIONS (4)
  - Peripheral ischaemia [Recovered/Resolved]
  - Colon neoplasm [Unknown]
  - Thrombosis [Unknown]
  - Type 2 diabetes mellitus [Unknown]
